FAERS Safety Report 8370626-1 (Version None)
Quarter: 2012Q2

REPORT INFORMATION
  Report Type: 
  Country: None (occurrence: None)
  Receive Date: 20120518
  Receipt Date: 20120514
  Transmission Date: 20120825
  Serious: Yes (Hospitalization)
  Sender: FDA-Public Use
  Company Number: US-ELI_LILLY_AND_COMPANY-US201203009037

PATIENT
  Sex: Female

DRUGS (1)
  1. HUMULIN R [Suspect]
     Indication: TYPE 2 DIABETES MELLITUS
     Dosage: SLIDING SCALE
     Dates: start: 20070101

REACTIONS (4)
  - BLOOD GLUCOSE INCREASED [None]
  - WEIGHT DECREASED [None]
  - DRUG INEFFECTIVE [None]
  - MALAISE [None]
